FAERS Safety Report 20990863 (Version 3)
Quarter: 2023Q4

REPORT INFORMATION
  Report Type: Other
  Country: US (occurrence: None)
  Receive Date: 20220622
  Receipt Date: 20231129
  Transmission Date: 20240110
  Serious: Yes (Other)
  Sender: FDA-Public Use
  Company Number: US-ROCHE-3118436

PATIENT
  Age: 53 Year
  Sex: Female
  Weight: 59.02 kg

DRUGS (12)
  1. OCREVUS [Suspect]
     Active Substance: OCRELIZUMAB
     Indication: Relapsing-remitting multiple sclerosis
     Route: 042
     Dates: end: 2020
  2. OCREVUS [Suspect]
     Active Substance: OCRELIZUMAB
     Dosage: STARTED HALF DOSE INFUSION ABOUT 8 TO 9 YEARS AGO ON IT FOR 2.5 TO 3 YEARS.
     Route: 042
     Dates: end: 2020
  3. TYSABRI [Suspect]
     Active Substance: NATALIZUMAB
     Indication: Product used for unknown indication
     Route: 065
  4. GABAPENTIN [Concomitant]
     Active Substance: GABAPENTIN
  5. PROZAC [Concomitant]
     Active Substance: FLUOXETINE HYDROCHLORIDE
  6. BYSTOLIC [Concomitant]
     Active Substance: NEBIVOLOL HYDROCHLORIDE
  7. HYDROCHLOROTHIAZIDE [Concomitant]
     Active Substance: HYDROCHLOROTHIAZIDE
  8. FLONASE [Concomitant]
     Active Substance: FLUTICASONE PROPIONATE
  9. VITAMIN D3 [Concomitant]
     Active Substance: CHOLECALCIFEROL
  10. SOLU-MEDROL [Concomitant]
     Active Substance: METHYLPREDNISOLONE SODIUM SUCCINATE
  11. BENADRYL [Concomitant]
     Active Substance: DIPHENHYDRAMINE HYDROCHLORIDE
  12. TYLENOL [Concomitant]
     Active Substance: ACETAMINOPHEN

REACTIONS (10)
  - Staphylococcal infection [Recovered/Resolved]
  - Blood immunoglobulin G decreased [Recovered/Resolved]
  - Upper respiratory tract infection [Recovered/Resolved]
  - JC polyomavirus test positive [Recovered/Resolved]
  - Sinusitis [Recovered/Resolved]
  - Blood oestrogen decreased [Recovered/Resolved]
  - Blood testosterone decreased [Recovered/Resolved]
  - Progesterone decreased [Recovered/Resolved]
  - Blood potassium decreased [Recovered/Resolved]
  - Off label use [Unknown]

NARRATIVE: CASE EVENT DATE: 20190101
